FAERS Safety Report 5721379-4 (Version None)
Quarter: 2008Q2

REPORT INFORMATION
  Report Type: 
  Country: None (occurrence: None)
  Receive Date: 20080429
  Receipt Date: 20080423
  Transmission Date: 20081010
  Serious: Yes (Death)
  Sender: FDA-Public Use
  Company Number: JP-NOVOPROD-274637

PATIENT
  Age: 66 Year
  Sex: Male
  Weight: 60 kg

DRUGS (1)
  1. NOVOSEVEN [Suspect]
     Indication: DRUG USE FOR UNKNOWN INDICATION
     Route: 042
     Dates: end: 20080410

REACTIONS (2)
  - DISSEMINATED INTRAVASCULAR COAGULATION [None]
  - MULTI-ORGAN FAILURE [None]
